FAERS Safety Report 7580749 (Version 3)
Quarter: 2012Q4

REPORT INFORMATION
  Report Type: 
  Country: US (occurrence: US)
  Receive Date: 20100910
  Receipt Date: 20121011
  Transmission Date: 20130627
  Serious: Yes (Death, Other)
  Sender: FDA-Public Use
  Company Number: US-ROCHE-725191

PATIENT
  Sex: Male

DRUGS (7)
  1. TARCEVA [Suspect]
     Indication: LUNG NEOPLASM MALIGNANT
     Route: 048
     Dates: start: 200909, end: 201001
  2. TARCEVA [Suspect]
     Indication: OFF LABEL USE
     Route: 065
     Dates: start: 201001, end: 20100510
  3. TARCEVA [Suspect]
     Indication: ADENOID CYSTIC CARCINOMA
  4. TARCEVA [Suspect]
     Indication: BRONCHIAL CARCINOMA
  5. AVASTIN [Suspect]
     Indication: LUNG NEOPLASM MALIGNANT
  6. AVASTIN [Suspect]
     Indication: BRONCHIAL CARCINOMA
  7. VALIUM [Suspect]
     Indication: PRODUCT USED FOR UNKNOWN INDICATION

REACTIONS (7)
  - Death [Fatal]
  - Disease progression [Unknown]
  - Drug effect decreased [Unknown]
  - Rash [Unknown]
  - Diarrhoea [Unknown]
  - Dyspnoea [Unknown]
  - Cyst [Unknown]
